FAERS Safety Report 25429819 (Version 1)
Quarter: 2025Q2

REPORT INFORMATION
  Report Type: Report from Study
  Country: BR (occurrence: BR)
  Receive Date: 20250612
  Receipt Date: 20250612
  Transmission Date: 20250716
  Serious: Yes (Hospitalization)
  Sender: CHATTEM
  Company Number: BR-OPELLA-2025OHG017910

PATIENT
  Age: 11 Year
  Sex: Female

DRUGS (7)
  1. ALLEGRA [Suspect]
     Active Substance: FEXOFENADINE HYDROCHLORIDE
     Indication: Dermatitis atopic
     Route: 048
     Dates: end: 2025
  2. ALLEGRA [Suspect]
     Active Substance: FEXOFENADINE HYDROCHLORIDE
     Route: 048
  3. CEPHALEXIN [Concomitant]
     Active Substance: CEPHALEXIN
     Indication: Dermatitis atopic
     Route: 048
     Dates: end: 20250604
  4. Predisim [Concomitant]
     Indication: Dermatitis atopic
     Route: 065
  5. MONTELUKAST SODIUM [Concomitant]
     Active Substance: MONTELUKAST SODIUM
     Indication: Dermatitis atopic
     Route: 065
     Dates: end: 20250604
  6. CEFUROXIME [Concomitant]
     Active Substance: CEFUROXIME
     Indication: Dermatitis atopic
     Route: 065
  7. Cortisonal mupirocin [Concomitant]
     Indication: Dermatitis atopic
     Route: 061
     Dates: start: 20250603

REACTIONS (6)
  - Condition aggravated [Not Recovered/Not Resolved]
  - Hospitalisation [Recovered/Resolved]
  - Skin lesion [Not Recovered/Not Resolved]
  - Dermatitis [Not Recovered/Not Resolved]
  - Pruritus [Not Recovered/Not Resolved]
  - Product use in unapproved indication [Unknown]

NARRATIVE: CASE EVENT DATE: 20170101
